FAERS Safety Report 7477177-7 (Version None)
Quarter: 2011Q2

REPORT INFORMATION
  Report Type: 
  Country: None (occurrence: None)
  Receive Date: 20110512
  Receipt Date: 20110221
  Transmission Date: 20111010
  Serious: No
  Sender: FDA-Public Use
  Company Number: US-NOVEN-11US001834

PATIENT
  Sex: Female

DRUGS (3)
  1. METFORMIN HCL [Concomitant]
     Indication: DIABETES MELLITUS
     Dosage: UNK
     Route: 048
  2. DAYTRANA [Suspect]
     Indication: ATTENTION DEFICIT/HYPERACTIVITY DISORDER
     Dosage: 20 MG, UNK
     Route: 062
     Dates: start: 20101001
  3. INSULIN [Concomitant]
     Indication: DIABETES MELLITUS
     Dosage: PRN
     Route: 058

REACTIONS (6)
  - DRUG ADMINISTRATION ERROR [None]
  - DISTURBANCE IN SOCIAL BEHAVIOUR [None]
  - INCORRECT DRUG ADMINISTRATION DURATION [None]
  - APPLICATION SITE OEDEMA [None]
  - APPLICATION SITE ERYTHEMA [None]
  - PRODUCT QUALITY ISSUE [None]
